FAERS Safety Report 7658282-9 (Version None)
Quarter: 2011Q3

REPORT INFORMATION
  Report Type: 
  Country: None (occurrence: None)
  Receive Date: 20110804
  Receipt Date: 20110804
  Transmission Date: 20111222
  Serious: No
  Sender: FDA-Public Use
  Company Number: None

PATIENT

DRUGS (1)
  1. AVANDIA [Suspect]

REACTIONS (3)
  - CARDIOMEGALY [None]
  - IMPAIRED WORK ABILITY [None]
  - CARDIAC FAILURE CONGESTIVE [None]
